FAERS Safety Report 14211344 (Version 1)
Quarter: 2017Q4

REPORT INFORMATION
  Report Type: Spontaneous
  Country: US (occurrence: None)
  Receive Date: 20171121
  Receipt Date: 20171121
  Transmission Date: 20180321
  Serious: No
  Sender: FDA-Public Use
  Company Number: None

PATIENT
  Sex: Male

DRUGS (1)
  1. OTEZLA [Suspect]
     Active Substance: APREMILAST
     Indication: PSORIASIS
     Route: 058
     Dates: start: 20171023

REACTIONS (4)
  - Nausea [None]
  - Depressed mood [None]
  - Therapy cessation [None]
  - Abdominal discomfort [None]
